FAERS Safety Report 18769397 (Version 1)
Quarter: 2021Q1

REPORT INFORMATION
  Report Type: Report from Study
  Country: FR (occurrence: FR)
  Receive Date: 20210121
  Receipt Date: 20210121
  Transmission Date: 20210419
  Serious: Yes (Other)
  Sender: FDA-Public Use
  Company Number: FR-EMD SERONO-9212762

PATIENT
  Sex: Female

DRUGS (2)
  1. OVITRELLE [Suspect]
     Active Substance: CHORIOGONADOTROPIN ALFA
     Indication: CONTROLLED OVARIAN STIMULATION
  2. CLOMID [Suspect]
     Active Substance: CLOMIPHENE CITRATE
     Indication: CONTROLLED OVARIAN STIMULATION

REACTIONS (1)
  - Foetal death [Unknown]
